FAERS Safety Report 4663714-4 (Version None)
Quarter: 2005Q2

REPORT INFORMATION
  Report Type: 
  Country: None (occurrence: None)
  Receive Date: 20050516
  Receipt Date: 20050502
  Transmission Date: 20051028
  Serious: No
  Sender: FDA-Public Use
  Company Number: 2005072961

PATIENT
  Age: 86 Year
  Sex: Female
  Weight: 53.5244 kg

DRUGS (5)
  1. DETROL [Suspect]
     Indication: BLADDER DISORDER
  2. BEXTRA [Suspect]
     Indication: ARTHRITIS
     Dosage: 10 MG (10 MG, 1 IN 1 D), ORAL
     Route: 048
     Dates: start: 20041119
  3. LOSARTAN POTASSIUM [Concomitant]
  4. LEVOTHYROXINE SODIUM [Concomitant]
  5. GLICLAZIDE (GLICLAZIDE) [Concomitant]

REACTIONS (6)
  - BLADDER DISORDER [None]
  - CONDITION AGGRAVATED [None]
  - EPISTAXIS [None]
  - RASH GENERALISED [None]
  - UNEVALUABLE EVENT [None]
  - UNRESPONSIVE TO VERBAL STIMULI [None]
